FAERS Safety Report 4629485-2 (Version None)
Quarter: 2005Q2

REPORT INFORMATION
  Report Type: 
  Country: None (occurrence: None)
  Receive Date: 20050405
  Receipt Date: 20050322
  Transmission Date: 20051028
  Serious: No
  Sender: FDA-Public Use
  Company Number: 2005PK00511

PATIENT
  Sex: Male

DRUGS (2)
  1. NAROPIN [Suspect]
     Indication: PAIN
  2. NAROPIN [Suspect]
     Indication: PAIN

REACTIONS (4)
  - ACCIDENTAL OVERDOSE [None]
  - ANAESTHETIC COMPLICATION [None]
  - LIMB IMMOBILISATION [None]
  - MEDICATION ERROR [None]
